FAERS Safety Report 23715957 (Version 1)
Quarter: 2024Q2

REPORT INFORMATION
  Report Type: Spontaneous
  Country: US (occurrence: US)
  Receive Date: 20240408
  Receipt Date: 20240408
  Transmission Date: 20240716
  Serious: No
  Sender: FDA-Public Use
  Company Number: US-CIPLA LTD.-2024US02580

PATIENT

DRUGS (1)
  1. TOPIRAMATE [Suspect]
     Active Substance: TOPIRAMATE
     Indication: Product used for unknown indication
     Dosage: 200 MILLIGRAM, BID (15 YEARS AGO, DOSE AND FREQUENCY 200 MG IN THE MORNING AND 200 MG AT NIGHT)
     Route: 065

REACTIONS (2)
  - Toxicity to various agents [Unknown]
  - Visual impairment [Unknown]
